FAERS Safety Report 7139491-4 (Version None)
Quarter: 2010Q4

REPORT INFORMATION
  Report Type: 
  Country: None (occurrence: None)
  Receive Date: 20101206
  Receipt Date: 20101126
  Transmission Date: 20110411
  Serious: Yes (Other)
  Sender: FDA-Public Use
  Company Number: JP-ASTRAZENECA-2010SE53661

PATIENT
  Age: 61 Year
  Sex: Male
  Weight: 80 kg

DRUGS (4)
  1. BLOPRESS [Suspect]
     Indication: HYPERTENSION
     Route: 048
     Dates: start: 20050409, end: 20081129
  2. BLOPRESS [Suspect]
     Route: 048
     Dates: start: 20081130, end: 20081220
  3. BLOPRESS [Suspect]
     Route: 048
     Dates: start: 20081221, end: 20101001
  4. PLETAL [Concomitant]
     Route: 048
     Dates: start: 20050409, end: 20100930

REACTIONS (1)
  - INTERSTITIAL LUNG DISEASE [None]
